FAERS Safety Report 9611256 (Version 2)
Quarter: 2013Q4

REPORT INFORMATION
  Report Type: Spontaneous
  Country: US (occurrence: US)
  Receive Date: 20131010
  Receipt Date: 20131127
  Transmission Date: 20140711
  Serious: Yes (Hospitalization, Other)
  Sender: FDA-Public Use
  Company Number: US-AMGEN-USASP2013070663

PATIENT
  Age: 52 Year
  Sex: Female

DRUGS (1)
  1. ENBREL [Suspect]
     Indication: RHEUMATOID ARTHRITIS
     Dosage: 50 MG, QWK
     Route: 065
     Dates: start: 20120401, end: 20131108

REACTIONS (13)
  - Bipolar I disorder [Unknown]
  - Mania [Unknown]
  - Rheumatoid nodule [Not Recovered/Not Resolved]
  - Blindness [Not Recovered/Not Resolved]
  - Nausea [Not Recovered/Not Resolved]
  - Dizziness [Not Recovered/Not Resolved]
  - Hyperhidrosis [Not Recovered/Not Resolved]
  - Amnesia [Unknown]
  - Musculoskeletal stiffness [Not Recovered/Not Resolved]
  - Pain in extremity [Not Recovered/Not Resolved]
  - Arthralgia [Not Recovered/Not Resolved]
  - Diplopia [Not Recovered/Not Resolved]
  - Malaise [Unknown]
